FAERS Safety Report 20871950 (Version 1)
Quarter: 2022Q2

REPORT INFORMATION
  Report Type: Spontaneous
  Country: US (occurrence: None)
  Receive Date: 20220519
  Receipt Date: 20220519
  Transmission Date: 20220721
  Serious: Yes (Life-Threatening, Hospitalization, Other)
  Sender: FDA-Public Use
  Company Number: None

PATIENT

DRUGS (3)
  1. ALLOPURINOL [Suspect]
     Active Substance: ALLOPURINOL
     Indication: Gout
     Dates: start: 20091021, end: 20091118
  2. COLCHICINE [Suspect]
     Active Substance: COLCHICINE
  3. AUGMENTIN [Suspect]
     Active Substance: AMOXICILLIN\CLAVULANATE POTASSIUM

REACTIONS (10)
  - Stevens-Johnson syndrome [None]
  - Renal failure [None]
  - Dialysis [None]
  - Coma [None]
  - Gait inability [None]
  - Liver injury [None]
  - Respiratory failure [None]
  - Haematochezia [None]
  - Thyroid disorder [None]
  - Urinary tract infection [None]

NARRATIVE: CASE EVENT DATE: 20091118
